FAERS Safety Report 24250281 (Version 1)
Quarter: 2024Q3

REPORT INFORMATION
  Report Type: Spontaneous
  Country: US (occurrence: US)
  Receive Date: 20240826
  Receipt Date: 20240826
  Transmission Date: 20241016
  Serious: Yes (Hospitalization, Other)
  Sender: BRISTOL MYERS SQUIBB
  Company Number: US-BRISTOL-MYERS SQUIBB COMPANY-2024-132164

PATIENT
  Age: 67 Year
  Sex: Female

DRUGS (1)
  1. THALIDOMIDE [Suspect]
     Active Substance: THALIDOMIDE
     Indication: Cutaneous lupus erythematosus
     Dosage: DOSE : 50MG;     FREQ : AT BEDTIME, DAILY
     Route: 048

REACTIONS (2)
  - Cardio-respiratory arrest [Unknown]
  - Off label use [Unknown]
